FAERS Safety Report 14046151 (Version 1)
Quarter: 2017Q4

REPORT INFORMATION
  Report Type: Spontaneous
  Country: US (occurrence: US)
  Receive Date: 20171005
  Receipt Date: 20171005
  Transmission Date: 20180321
  Serious: Yes (Other)
  Sender: FDA-Public Use
  Company Number: US-JNJFOC-20171002639

PATIENT
  Age: 80 Year
  Sex: Male
  Weight: 154 kg

DRUGS (10)
  1. PRILOSEC [Concomitant]
     Active Substance: OMEPRAZOLE MAGNESIUM
  2. FLOMAX [Concomitant]
     Active Substance: TAMSULOSIN HYDROCHLORIDE
  3. REMERON [Concomitant]
     Active Substance: MIRTAZAPINE
  4. GLIPIZIDE. [Concomitant]
     Active Substance: GLIPIZIDE
  5. XANAX [Concomitant]
     Active Substance: ALPRAZOLAM
  6. SERTRALINE [Concomitant]
     Active Substance: SERTRALINE HYDROCHLORIDE
  7. IMBRUVICA [Suspect]
     Active Substance: IBRUTINIB
     Indication: B-CELL SMALL LYMPHOCYTIC LYMPHOMA
     Route: 048
     Dates: start: 20170511, end: 201709
  8. TRULICITY [Concomitant]
     Active Substance: DULAGLUTIDE
  9. DOXEPIN [Concomitant]
     Active Substance: DOXEPIN
  10. OXYCODONE [Concomitant]
     Active Substance: OXYCODONE

REACTIONS (1)
  - Spinal operation [Recovered/Resolved]

NARRATIVE: CASE EVENT DATE: 20170927
